FAERS Safety Report 23440837 (Version 1)
Quarter: 2024Q1

REPORT INFORMATION
  Report Type: Spontaneous
  Country: FR (occurrence: FR)
  Receive Date: 20240125
  Receipt Date: 20240125
  Transmission Date: 20240410
  Serious: Yes (Life-Threatening, Hospitalization, Other)
  Sender: FDA-Public Use
  Company Number: FR-AMNEAL PHARMACEUTICALS-2024-AMRX-00220

PATIENT
  Age: 19 Year
  Sex: Female

DRUGS (1)
  1. VENLAFAXINE HYDROCHLORIDE [Suspect]
     Active Substance: VENLAFAXINE HYDROCHLORIDE
     Indication: Product used for unknown indication
     Dosage: 11.25 G OF VENLAFAXINE
     Route: 048

REACTIONS (4)
  - Ventricular dysfunction [Recovering/Resolving]
  - Cardiac arrest [Unknown]
  - Suicide attempt [Unknown]
  - Intentional overdose [Unknown]
